FAERS Safety Report 7574294-8 (Version None)
Quarter: 2011Q2

REPORT INFORMATION
  Report Type: 
  Country: None (occurrence: None)
  Receive Date: 20110627
  Receipt Date: 20110613
  Transmission Date: 20111010
  Serious: Yes (Death)
  Sender: FDA-Public Use
  Company Number: JP-ROCHE-785316

PATIENT
  Age: 51 Year
  Sex: Female

DRUGS (5)
  1. AVASTIN [Suspect]
     Indication: LARGE INTESTINE CARCINOMA
     Dosage: DOSAGE IS UNCERTAIN.
     Route: 041
  2. LEUCOVORIN CALCIUM [Concomitant]
     Route: 041
  3. FLUOROURACIL [Concomitant]
     Dosage: FORM:INTRAVENOUS DRIP
     Route: 040
  4. OXALIPLATIN [Concomitant]
     Route: 041
  5. FLUOROURACIL [Concomitant]
     Route: 040

REACTIONS (1)
  - DISEASE PROGRESSION [None]
